FAERS Safety Report 4941829-0 (Version None)
Quarter: 2006Q1

REPORT INFORMATION
  Report Type: 
  Country: None (occurrence: None)
  Receive Date: 20060313
  Receipt Date: 20050617
  Transmission Date: 20060701
  Serious: Yes (Hospitalization)
  Sender: FDA-Public Use
  Company Number: 200515764GDDC

PATIENT
  Age: 15 Year
  Sex: Female
  Weight: 64 kg

DRUGS (3)
  1. LANTUS [Suspect]
     Indication: DIABETES MELLITUS INSULIN-DEPENDENT
     Dosage: DOSE UNIT: UNITS
     Route: 058
     Dates: start: 20050601, end: 20050711
  2. OXYTETRACYCLINE [Concomitant]
     Indication: ACNE
     Dosage: FREQUENCY: BEFORE MEALS
  3. NOVORAPID [Concomitant]
     Indication: DIABETES MELLITUS INSULIN-DEPENDENT
     Dosage: DOSE: VARIABLE DOSES
     Route: 058
     Dates: start: 20050601

REACTIONS (6)
  - ANGIONEUROTIC OEDEMA [None]
  - GENERALISED ERYTHEMA [None]
  - HYPERSENSITIVITY [None]
  - OEDEMA [None]
  - PRURITUS [None]
  - WEIGHT INCREASED [None]
